FAERS Safety Report 26112152 (Version 1)
Quarter: 2025Q4

REPORT INFORMATION
  Report Type: Spontaneous
  Country: GB (occurrence: GB)
  Receive Date: 20251202
  Receipt Date: 20251202
  Transmission Date: 20260117
  Serious: Yes (Other)
  Sender: MYLAN
  Company Number: None

PATIENT
  Age: 74 Year
  Sex: Male
  Weight: 95 kg

DRUGS (28)
  1. METFORMIN [Suspect]
     Active Substance: METFORMIN HYDROCHLORIDE
     Indication: Diabetes mellitus
     Dosage: 2 DOSAGE FORM, QD (TWO DAILY FOR DIABETIES)
     Dates: start: 20250401, end: 20250811
  2. METFORMIN [Suspect]
     Active Substance: METFORMIN HYDROCHLORIDE
     Dosage: 2 DOSAGE FORM, QD (TWO DAILY FOR DIABETIES)
     Route: 065
     Dates: start: 20250401, end: 20250811
  3. METFORMIN [Suspect]
     Active Substance: METFORMIN HYDROCHLORIDE
     Dosage: 2 DOSAGE FORM, QD (TWO DAILY FOR DIABETIES)
     Route: 065
     Dates: start: 20250401, end: 20250811
  4. METFORMIN [Suspect]
     Active Substance: METFORMIN HYDROCHLORIDE
     Dosage: 2 DOSAGE FORM, QD (TWO DAILY FOR DIABETIES)
     Dates: start: 20250401, end: 20250811
  5. CODEINE PHOSPHATE [Concomitant]
     Active Substance: CODEINE PHOSPHATE
     Dosage: AS DIRECTED
  6. CODEINE PHOSPHATE [Concomitant]
     Active Substance: CODEINE PHOSPHATE
     Dosage: AS DIRECTED
     Route: 065
  7. CODEINE PHOSPHATE [Concomitant]
     Active Substance: CODEINE PHOSPHATE
     Dosage: AS DIRECTED
     Route: 065
  8. CODEINE PHOSPHATE [Concomitant]
     Active Substance: CODEINE PHOSPHATE
     Dosage: AS DIRECTED
  9. ACETAMINOPHEN [Concomitant]
     Active Substance: ACETAMINOPHEN
     Dosage: UNK (AS DIRECTED)
  10. ACETAMINOPHEN [Concomitant]
     Active Substance: ACETAMINOPHEN
     Dosage: UNK (AS DIRECTED)
     Route: 065
  11. ACETAMINOPHEN [Concomitant]
     Active Substance: ACETAMINOPHEN
     Dosage: UNK (AS DIRECTED)
     Route: 065
  12. ACETAMINOPHEN [Concomitant]
     Active Substance: ACETAMINOPHEN
     Dosage: UNK (AS DIRECTED)
  13. ATORVASTATIN [Concomitant]
     Active Substance: ATORVASTATIN
     Indication: Blood cholesterol
     Dosage: 1 DOSAGE FORM, QD (ONE TABLET DAILY (TO LOWER CHOLESTEROL))
     Dates: start: 20250811
  14. ATORVASTATIN [Concomitant]
     Active Substance: ATORVASTATIN
     Dosage: 1 DOSAGE FORM, QD (ONE TABLET DAILY (TO LOWER CHOLESTEROL))
     Route: 065
     Dates: start: 20250811
  15. ATORVASTATIN [Concomitant]
     Active Substance: ATORVASTATIN
     Dosage: 1 DOSAGE FORM, QD (ONE TABLET DAILY (TO LOWER CHOLESTEROL))
     Route: 065
     Dates: start: 20250811
  16. ATORVASTATIN [Concomitant]
     Active Substance: ATORVASTATIN
     Dosage: 1 DOSAGE FORM, QD (ONE TABLET DAILY (TO LOWER CHOLESTEROL))
     Dates: start: 20250811
  17. CITALOPRAM [Concomitant]
     Active Substance: CITALOPRAM
     Indication: Antidepressant therapy
     Dosage: 1 DOSAGE FORM, QD (ONE TABLET DAILY (ANTI-ANXIETY + ANTIDEPRESSANT))
     Dates: start: 20250811
  18. CITALOPRAM [Concomitant]
     Active Substance: CITALOPRAM
     Dosage: 1 DOSAGE FORM, QD (ONE TABLET DAILY (ANTI-ANXIETY + ANTIDEPRESSANT))
     Route: 065
     Dates: start: 20250811
  19. CITALOPRAM [Concomitant]
     Active Substance: CITALOPRAM
     Dosage: 1 DOSAGE FORM, QD (ONE TABLET DAILY (ANTI-ANXIETY + ANTIDEPRESSANT))
     Route: 065
     Dates: start: 20250811
  20. CITALOPRAM [Concomitant]
     Active Substance: CITALOPRAM
     Dosage: 1 DOSAGE FORM, QD (ONE TABLET DAILY (ANTI-ANXIETY + ANTIDEPRESSANT))
     Dates: start: 20250811
  21. CLOPIDOGREL [Concomitant]
     Active Substance: CLOPIDOGREL BISULFATE
     Indication: Anticoagulant therapy
     Dosage: 1 DOSAGE FORM, QD (ONE TABLET DAILY (ANTI-CLOTTING))
     Dates: start: 20250811
  22. CLOPIDOGREL [Concomitant]
     Active Substance: CLOPIDOGREL BISULFATE
     Dosage: 1 DOSAGE FORM, QD (ONE TABLET DAILY (ANTI-CLOTTING))
     Route: 065
     Dates: start: 20250811
  23. CLOPIDOGREL [Concomitant]
     Active Substance: CLOPIDOGREL BISULFATE
     Dosage: 1 DOSAGE FORM, QD (ONE TABLET DAILY (ANTI-CLOTTING))
     Route: 065
     Dates: start: 20250811
  24. CLOPIDOGREL [Concomitant]
     Active Substance: CLOPIDOGREL BISULFATE
     Dosage: 1 DOSAGE FORM, QD (ONE TABLET DAILY (ANTI-CLOTTING))
     Dates: start: 20250811
  25. ACETYLCYSTEINE [Concomitant]
     Active Substance: ACETYLCYSTEINE
     Indication: Ill-defined disorder
     Dosage: 1 DOSAGE FORM (TAKE ONE EFFERVESCENT TABLET DISSOLVED IN HALF ...)
  26. ACETYLCYSTEINE [Concomitant]
     Active Substance: ACETYLCYSTEINE
     Dosage: 1 DOSAGE FORM (TAKE ONE EFFERVESCENT TABLET DISSOLVED IN HALF ...)
     Route: 065
  27. ACETYLCYSTEINE [Concomitant]
     Active Substance: ACETYLCYSTEINE
     Dosage: 1 DOSAGE FORM (TAKE ONE EFFERVESCENT TABLET DISSOLVED IN HALF ...)
     Route: 065
  28. ACETYLCYSTEINE [Concomitant]
     Active Substance: ACETYLCYSTEINE
     Dosage: 1 DOSAGE FORM (TAKE ONE EFFERVESCENT TABLET DISSOLVED IN HALF ...)

REACTIONS (5)
  - Myalgia [Recovered/Resolved]
  - Psychiatric symptom [Unknown]
  - Rash [Unknown]
  - Headache [Unknown]
  - Pain [Unknown]

NARRATIVE: CASE EVENT DATE: 20250401
